FAERS Safety Report 16131204 (Version 1)
Quarter: 2019Q1

REPORT INFORMATION
  Report Type: Spontaneous
  Country: US (occurrence: US)
  Receive Date: 20190328
  Receipt Date: 20190328
  Transmission Date: 20190418
  Serious: Yes (Death)
  Sender: FDA-Public Use
  Company Number: US-NEUROCRINE BIOSCIENCES INC.-2019NBI00772

PATIENT
  Age: 5 Decade
  Sex: Female

DRUGS (3)
  1. INGREZZA [Suspect]
     Active Substance: VALBENAZINE
     Dates: start: 2018, end: 2018
  2. INGREZZA [Suspect]
     Active Substance: VALBENAZINE
     Indication: PRODUCT USED FOR UNKNOWN INDICATION
     Dates: start: 201810, end: 2018
  3. INGREZZA [Suspect]
     Active Substance: VALBENAZINE
     Dates: start: 201812, end: 201901

REACTIONS (4)
  - Pneumonia [Fatal]
  - Wrong technique in product usage process [Unknown]
  - Respiratory failure [Fatal]
  - Rash [Unknown]
